FAERS Safety Report 4977214-5 (Version None)
Quarter: 2006Q2

REPORT INFORMATION
  Report Type: 
  Country: None (occurrence: None)
  Receive Date: 20060419
  Receipt Date: 20041222
  Transmission Date: 20061013
  Serious: Yes (Death)
  Sender: FDA-Public Use
  Company Number: US-MERCK-0412USA02692

PATIENT
  Age: 48 Year
  Sex: Male
  Weight: 114 kg

DRUGS (1)
  1. VIOXX [Suspect]
     Indication: ARTHRALGIA
     Route: 048
     Dates: start: 20010101, end: 20010101

REACTIONS (17)
  - ABDOMINAL PAIN LOWER [None]
  - ARTHRALGIA [None]
  - BLADDER OBSTRUCTION [None]
  - BLOOD URINE PRESENT [None]
  - BREATH SOUNDS ABNORMAL [None]
  - CARDIAC ARREST [None]
  - CHEST PAIN [None]
  - FLANK PAIN [None]
  - GASTRITIS [None]
  - HAEMATOCHEZIA [None]
  - HAEMATOSPERMIA [None]
  - MYOCARDIAL INFARCTION [None]
  - NEPHROLITHIASIS [None]
  - PRESCRIBED OVERDOSE [None]
  - RECTAL HAEMORRHAGE [None]
  - RED BLOOD CELLS SEMEN POSITIVE [None]
  - RENAL CYST [None]
